FAERS Safety Report 13577051 (Version 1)
Quarter: 2017Q2

REPORT INFORMATION
  Report Type: Spontaneous
  Country: FR (occurrence: FR)
  Receive Date: 20170524
  Receipt Date: 20170524
  Transmission Date: 20170830
  Serious: Yes (Other)
  Sender: FDA-Public Use
  Company Number: FR-PFIZER INC-2017218278

PATIENT
  Age: 69 Year
  Sex: Male

DRUGS (4)
  1. BOSULIF [Suspect]
     Active Substance: BOSUTINIB MONOHYDRATE
     Indication: CHRONIC MYELOID LEUKAEMIA
     Dosage: UNK
     Route: 048
     Dates: start: 2013, end: 201601
  2. AVLOCARDYL /00030001/ [Concomitant]
     Active Substance: PROPRANOLOL HYDROCHLORIDE
  3. KARDEGIC [Concomitant]
     Active Substance: ASPIRIN LYSINE
  4. LOXEN /00639802/ [Concomitant]
     Active Substance: NICARDIPINE

REACTIONS (1)
  - Organising pneumonia [Recovering/Resolving]

NARRATIVE: CASE EVENT DATE: 201509
